FAERS Safety Report 14339429 (Version 5)
Quarter: 2018Q2

REPORT INFORMATION
  Report Type: Spontaneous
  Country: FR (occurrence: FR)
  Receive Date: 20171230
  Receipt Date: 20180611
  Transmission Date: 20180711
  Serious: Yes (Other)
  Sender: FDA-Public Use
  Company Number: FR-AUROBINDO-AUR-APL-2017-48194

PATIENT

DRUGS (6)
  1. STELARA [Suspect]
     Active Substance: USTEKINUMAB
     Indication: PSORIATIC ARTHROPATHY
     Dosage: 45 MG, UNK
     Route: 058
     Dates: start: 201607
  2. USTEKINUMAB [Suspect]
     Active Substance: USTEKINUMAB
     Indication: PSORIATIC ARTHROPATHY
     Dosage: 45 MG, UNK
     Route: 058
     Dates: start: 201702
  3. STELARA [Suspect]
     Active Substance: USTEKINUMAB
     Dosage: 45 MG, UNK
     Route: 058
     Dates: start: 201702
  4. TRAMADOL. [Suspect]
     Active Substance: TRAMADOL
     Indication: PSORIATIC ARTHROPATHY
     Dosage: DOSAGE FORM: UNSPECIFIED ()
     Route: 048
     Dates: start: 2016
  5. NAPROXEN. [Suspect]
     Active Substance: NAPROXEN
     Indication: PSORIATIC ARTHROPATHY
     Dosage: 1100 MILLIGRAM
     Route: 048
     Dates: start: 201611
  6. NAPROXEN. [Suspect]
     Active Substance: NAPROXEN
     Dosage: 550 MG, QD
     Route: 065
     Dates: start: 201611

REACTIONS (6)
  - Device ineffective [Recovered/Resolved with Sequelae]
  - Pregnancy [Recovered/Resolved with Sequelae]
  - Off label use [Unknown]
  - Maternal exposure timing unspecified [Recovered/Resolved with Sequelae]
  - Exposure during pregnancy [Recovered/Resolved]
  - Inappropriate schedule of drug administration [Unknown]

NARRATIVE: CASE EVENT DATE: 201607
